FAERS Safety Report 12129974 (Version 1)
Quarter: 2016Q1

REPORT INFORMATION
  Report Type: Spontaneous
  Country: US (occurrence: US)
  Receive Date: 20160229
  Receipt Date: 20160229
  Transmission Date: 20160526
  Serious: No
  Sender: FDA-Public Use
  Company Number: US-ACORDA-ACO_28594_2011

PATIENT
  Age: 73 Year
  Sex: Female
  Weight: 68.48 kg

DRUGS (3)
  1. AMPYRA [Suspect]
     Active Substance: DALFAMPRIDINE
     Indication: HYDROCEPHALUS
  2. AMPYRA [Suspect]
     Active Substance: DALFAMPRIDINE
     Indication: MULTIPLE SCLEROSIS
  3. AMPYRA [Suspect]
     Active Substance: DALFAMPRIDINE
     Indication: GAIT DISTURBANCE
     Dosage: 10 MG, BID
     Route: 048
     Dates: start: 20111218, end: 20111220

REACTIONS (6)
  - Dyspnoea [Recovered/Resolved]
  - Psychomotor hyperactivity [Recovered/Resolved]
  - Insomnia [Recovered/Resolved]
  - Nervousness [Recovered/Resolved]
  - Tremor [Unknown]
  - Confusional state [Unknown]

NARRATIVE: CASE EVENT DATE: 201112
